FAERS Safety Report 8801014 (Version 16)
Quarter: 2015Q1

REPORT INFORMATION
  Report Type: Report from Study
  Country: US (occurrence: US)
  Receive Date: 20120921
  Receipt Date: 20150206
  Transmission Date: 20150721
  Serious: Yes (Hospitalization, Other)
  Sender: FDA-Public Use
  Company Number: US-GLAXOSMITHKLINE-A0973887A

PATIENT

DRUGS (7)
  1. SIMVASTATIN. [Suspect]
     Active Substance: SIMVASTATIN
     Indication: BLOOD CHOLESTEROL
     Dosage: UNKNOWN
     Route: 065
  2. LOPRESSOR [Suspect]
     Active Substance: METOPROLOL TARTRATE
     Indication: PRODUCT USED FOR UNKNOWN INDICATION
     Dosage: UNKNOWN
     Route: 065
  3. PREDNISONE. [Concomitant]
     Active Substance: PREDNISONE
  4. FLUVASTATIN [Suspect]
     Active Substance: FLUVASTATIN SODIUM
     Indication: PRODUCT USED FOR UNKNOWN INDICATION
  5. LEVOFLOXACIN. [Concomitant]
     Active Substance: LEVOFLOXACIN
  6. SALBUTAMOL SULPHATE [Suspect]
     Active Substance: ALBUTEROL SULFATE
     Indication: CHRONIC OBSTRUCTIVE PULMONARY DISEASE
     Dosage: UNKNOWN DOSING
     Route: 065
  7. SALBUTAMOL SULPHATE [Suspect]
     Active Substance: ALBUTEROL SULFATE
     Indication: CHRONIC OBSTRUCTIVE PULMONARY DISEASE
     Dosage: UNKNOWN DOSING
     Route: 055

REACTIONS (48)
  - Neoplasm malignant [Recovered/Resolved]
  - Cough [Unknown]
  - Rash [Unknown]
  - Blood pressure abnormal [Unknown]
  - Asthenia [Not Recovered/Not Resolved]
  - Tremor [Recovered/Resolved]
  - Eczema [Unknown]
  - Hypothyroidism [Unknown]
  - Fluid retention [Unknown]
  - Dyspnoea [Unknown]
  - Alopecia [Unknown]
  - Neuropathy peripheral [Unknown]
  - Lung lobectomy [Unknown]
  - Lymphadenectomy [Unknown]
  - Dry skin [Unknown]
  - Blood pressure decreased [Unknown]
  - Restless legs syndrome [Unknown]
  - Decreased appetite [Unknown]
  - Arthritis [Unknown]
  - Ill-defined disorder [Unknown]
  - Fatigue [Unknown]
  - Pain in extremity [Unknown]
  - Pruritus [Unknown]
  - Depressed mood [Unknown]
  - Skin haemorrhage [Unknown]
  - Atelectasis [Unknown]
  - Foot deformity [Unknown]
  - Dyskinesia [Unknown]
  - Chest discomfort [Unknown]
  - Pain [Unknown]
  - Hyperventilation [Unknown]
  - Skin fissures [Unknown]
  - Adverse event [Unknown]
  - Lung neoplasm malignant [Recovered/Resolved]
  - Pulmonary mass [Not Recovered/Not Resolved]
  - Insomnia [Not Recovered/Not Resolved]
  - Muscle spasms [Not Recovered/Not Resolved]
  - Drug administration error [Unknown]
  - Cardiac monitoring [Unknown]
  - Myalgia [Not Recovered/Not Resolved]
  - Lung infection [Unknown]
  - Lung operation [Unknown]
  - Rosacea [Unknown]
  - Myalgia [Unknown]
  - Blood glucose increased [Unknown]
  - Dyspnoea exertional [Unknown]
  - Drug ineffective [Unknown]
  - Arthropathy [Not Recovered/Not Resolved]

NARRATIVE: CASE EVENT DATE: 2013
